FAERS Safety Report 9466423 (Version 1)
Quarter: 2013Q3

REPORT INFORMATION
  Report Type: Spontaneous
  Country: GB (occurrence: GB)
  Receive Date: 20130820
  Receipt Date: 20130820
  Transmission Date: 20140515
  Serious: Yes (Disabling)
  Sender: FDA-Public Use
  Company Number: GB-TEVA-425689ISR

PATIENT
  Age: 63 Year
  Sex: Female
  Weight: 64 kg

DRUGS (7)
  1. FEXOFENADINE [Suspect]
     Indication: ANGIOEDEMA
     Dosage: 240 MILLIGRAM DAILY;
     Route: 048
     Dates: start: 20130603, end: 20130605
  2. SOLPADOL [Concomitant]
     Indication: ANALGESIC THERAPY
     Dosage: 8 DOSAGE FORMS DAILY;
     Route: 048
     Dates: start: 20130603, end: 20130605
  3. OMEPRAZOLE [Concomitant]
     Indication: GASTROOESOPHAGEAL REFLUX DISEASE
     Dosage: 40 MILLIGRAM DAILY; ONGOING
     Route: 048
  4. NAPROXEN [Concomitant]
     Indication: PAIN
     Dosage: 1000 MILLIGRAM DAILY; AS NEEDED, ONGOING
     Route: 048
  5. PREGABALIN [Concomitant]
     Indication: PAIN
     Dosage: 600 MILLIGRAM DAILY; ONGOING
     Route: 048
  6. METOCLOPRAMID [Concomitant]
     Indication: VERTIGO
     Dosage: AS NEEDED, ONGOING
     Route: 048
  7. AMITRIPTYLINE [Concomitant]
     Indication: PAIN
     Dosage: 30 MILLIGRAM DAILY; ONGOING
     Route: 048

REACTIONS (1)
  - Heart rate increased [Recovered/Resolved]
